FAERS Safety Report 25220998 (Version 1)
Quarter: 2025Q2

REPORT INFORMATION
  Report Type: Spontaneous
  Country: US (occurrence: None)
  Receive Date: 20250419
  Receipt Date: 20250419
  Transmission Date: 20250717
  Serious: No
  Sender: FDA-CTU
  Company Number: None

PATIENT
  Age: 45 Year
  Sex: Male
  Weight: 99 kg

DRUGS (6)
  1. AMLODIPINE BESYLATE [Suspect]
     Active Substance: AMLODIPINE BESYLATE
     Indication: Hypertension
     Dosage: 2 TABLETS DAILY ORAL ?
     Route: 048
     Dates: start: 20250316, end: 20250414
  2. LOSARTAN [Concomitant]
     Active Substance: LOSARTAN
  3. FENOFIBRATE [Concomitant]
     Active Substance: FENOFIBRATE
  4. Cholestoff OTC [Concomitant]
  5. Vitamin D3 OTC [Concomitant]
  6. TUMS [Concomitant]
     Active Substance: CALCIUM CARBONATE

REACTIONS (1)
  - Anxiety [None]

NARRATIVE: CASE EVENT DATE: 20250413
